FAERS Safety Report 7415870-2 (Version None)
Quarter: 2011Q2

REPORT INFORMATION
  Report Type: 
  Country: None (occurrence: None)
  Receive Date: 20110414
  Receipt Date: 20110317
  Transmission Date: 20111010
  Serious: No
  Sender: FDA-Public Use
  Company Number: US-B.I. PHARMACEUTICALS,INC./RIDGEFIELD-2011-BP-08547BP

PATIENT
  Sex: Male

DRUGS (8)
  1. AVODART [Concomitant]
     Indication: PROSTATIC DISORDER
  2. PRADAXA [Suspect]
     Indication: ATRIAL FIBRILLATION
     Dosage: 300 MG
     Route: 048
     Dates: start: 20110201
  3. FLUTICASONE [Concomitant]
     Indication: MULTIPLE ALLERGIES
  4. LISINOPRIL [Concomitant]
     Indication: HYPERTENSION
  5. COREG [Concomitant]
     Indication: ATRIAL FIBRILLATION
  6. TERAZOSIN [Concomitant]
     Indication: PROSTATIC DISORDER
  7. LORANTIDINE [Concomitant]
     Indication: MULTIPLE ALLERGIES
  8. RANITIDINE [Concomitant]
     Indication: GASTROOESOPHAGEAL REFLUX DISEASE

REACTIONS (2)
  - OEDEMA PERIPHERAL [None]
  - JOINT SWELLING [None]
